FAERS Safety Report 6902008-0 (Version None)
Quarter: 2010Q3

REPORT INFORMATION
  Report Type: 
  Country: None (occurrence: None)
  Receive Date: 20100803
  Receipt Date: 20080410
  Transmission Date: 20110219
  Serious: No
  Sender: FDA-Public Use
  Company Number: US-PFIZER INC-2008027820

PATIENT
  Sex: Female
  Weight: 90 kg

DRUGS (4)
  1. LYRICA [Suspect]
     Indication: BURNING SENSATION
     Dates: start: 20080221
  2. DIOVANE [Concomitant]
  3. CADUET [Concomitant]
  4. LEVOTHYROXINE [Concomitant]

REACTIONS (1)
  - DRUG INEFFECTIVE [None]
